FAERS Safety Report 21359650 (Version 2)
Quarter: 2022Q3

REPORT INFORMATION
  Report Type: Spontaneous
  Country: US (occurrence: US)
  Receive Date: 20220921
  Receipt Date: 20220926
  Transmission Date: 20221027
  Serious: No
  Sender: FDA-Public Use
  Company Number: US-PFIZER INC-202201173931

PATIENT
  Age: 60 Year
  Sex: Female
  Weight: 52.62 kg

DRUGS (1)
  1. PAXLOVID [Suspect]
     Active Substance: NIRMATRELVIR\RITONAVIR
     Indication: COVID-19 treatment
     Dosage: 1 CAPSULE AT NIGHT THE FIRST DAY/1 CAPSULE IN THE MORNING AND 1 IN THE EVENING ON THE SECOND DAY

REACTIONS (1)
  - Incorrect dose administered [Unknown]

NARRATIVE: CASE EVENT DATE: 20220916
